FAERS Safety Report 17302574 (Version 1)
Quarter: 2020Q1

REPORT INFORMATION
  Report Type: Spontaneous
  Country: NL (occurrence: NL)
  Receive Date: 20200122
  Receipt Date: 20200122
  Transmission Date: 20200409
  Serious: Yes (Other)
  Sender: FDA-Public Use
  Company Number: NL-MYLANLABS-2020M1006394

PATIENT
  Sex: Male
  Weight: 84 kg

DRUGS (1)
  1. ESCITALOPRAM [Suspect]
     Active Substance: ESCITALOPRAM OXALATE
     Indication: DEPRESSION
     Dosage: 10 MILLIGRAM, QD (1 KEER PER DAG, 1)
     Dates: start: 20191001, end: 20191202

REACTIONS (1)
  - Erectile dysfunction [Not Recovered/Not Resolved]
